FAERS Safety Report 5374524-7 (Version None)
Quarter: 2007Q2

REPORT INFORMATION
  Report Type: 
  Country: None (occurrence: None)
  Receive Date: 20070629
  Receipt Date: 20060621
  Transmission Date: 20071010
  Serious: No
  Sender: FDA-Public Use
  Company Number: A0609897A

PATIENT
  Sex: Male

DRUGS (1)
  1. ALBUTEROL [Suspect]
     Route: 065

REACTIONS (1)
  - DRUG INEFFECTIVE [None]
